FAERS Safety Report 24160883 (Version 8)
Quarter: 2025Q1

REPORT INFORMATION
  Report Type: Spontaneous
  Country: US (occurrence: US)
  Receive Date: 20240801
  Receipt Date: 20250120
  Transmission Date: 20250408
  Serious: No
  Sender: BIOGEN
  Company Number: US-BIOGEN-2024BI01275792

PATIENT
  Sex: Female

DRUGS (1)
  1. TYSABRI [Suspect]
     Active Substance: NATALIZUMAB
     Indication: Multiple sclerosis
     Dosage: INFUSED OVER 1 HOUR
     Route: 050
     Dates: start: 20181012

REACTIONS (5)
  - Inappropriate schedule of product administration [Unknown]
  - Multiple sclerosis relapse [Unknown]
  - Multiple sclerosis [Unknown]
  - Malaise [Unknown]
  - Fatigue [Unknown]
